FAERS Safety Report 9192799 (Version 1)
Quarter: 2013Q1

REPORT INFORMATION
  Report Type: Spontaneous
  Country: US (occurrence: None)
  Receive Date: 20130325
  Receipt Date: 20130325
  Transmission Date: 20140127
  Serious: Yes (Hospitalization)
  Sender: FDA-Public Use
  Company Number: None

PATIENT
  Sex: Male
  Weight: 58.7 kg

DRUGS (1)
  1. CETUXIMAB (ERBITUX) (714692) [Suspect]
     Dates: start: 20121022, end: 20121204

REACTIONS (10)
  - Mental status changes [None]
  - Respiratory distress [None]
  - Acidosis [None]
  - Malnutrition [None]
  - Renal failure acute [None]
  - Metabolic acidosis [None]
  - Blood culture positive [None]
  - Streptococcal infection [None]
  - Respiratory failure [None]
  - Pneumonia aspiration [None]
